FAERS Safety Report 6418772-3 (Version None)
Quarter: 2009Q4

REPORT INFORMATION
  Report Type: 
  Country: None (occurrence: None)
  Receive Date: 20091026
  Receipt Date: 20091014
  Transmission Date: 20100525
  Serious: Yes (Hospitalization)
  Sender: FDA-Public Use
  Company Number: 2009AC000054

PATIENT
  Age: 54 Year
  Sex: Female

DRUGS (16)
  1. DIGOXIN [Suspect]
     Dosage: 0.125 MG; QD; PO
     Route: 048
  2. INSULIN [Concomitant]
  3. CARDIZEM [Concomitant]
  4. LASIX [Concomitant]
  5. GLUCOPHAGE [Concomitant]
  6. GLYBURIDE [Concomitant]
  7. ATROVENT [Concomitant]
  8. PRILOSEC [Concomitant]
  9. VALIUM [Concomitant]
  10. PAXIL [Concomitant]
  11. AZMACORT [Concomitant]
  12. ALBUTEROL [Concomitant]
  13. INDERAL [Concomitant]
  14. TYLOX [Concomitant]
  15. SEREVENT [Concomitant]
  16. MOTRIN [Concomitant]

REACTIONS (33)
  - ADVERSE DRUG REACTION [None]
  - ANGINA PECTORIS [None]
  - ANHEDONIA [None]
  - ANXIETY [None]
  - ASTHMA [None]
  - ATRIAL FIBRILLATION [None]
  - ATRIAL FLUTTER [None]
  - BIPOLAR DISORDER [None]
  - BLOOD CHOLESTEROL INCREASED [None]
  - CARDIAC FAILURE CONGESTIVE [None]
  - CARDIOMEGALY [None]
  - CELLULITIS [None]
  - CHEST PAIN [None]
  - CHRONIC OBSTRUCTIVE PULMONARY DISEASE [None]
  - CORONARY ARTERY DISEASE [None]
  - DEEP VEIN THROMBOSIS [None]
  - DEPRESSION [None]
  - DIABETES MELLITUS [None]
  - ECONOMIC PROBLEM [None]
  - GASTROINTESTINAL DISORDER [None]
  - HEART BLOCK CONGENITAL [None]
  - HYPERTENSION [None]
  - MENTAL DISORDER [None]
  - MULTIPLE INJURIES [None]
  - MYOCARDIAL INFARCTION [None]
  - PAIN [None]
  - PALPITATIONS [None]
  - SCHIZOPHRENIA [None]
  - SOCIAL AVOIDANT BEHAVIOUR [None]
  - SURGERY [None]
  - UNEVALUABLE EVENT [None]
  - UTERINE CANCER [None]
  - VENTRICULAR FIBRILLATION [None]
